FAERS Safety Report 4710048-5 (Version None)
Quarter: 2005Q3

REPORT INFORMATION
  Report Type: 
  Country: None (occurrence: None)
  Receive Date: 20050707
  Receipt Date: 20050629
  Transmission Date: 20060218
  Serious: No
  Sender: FDA-Public Use
  Company Number: TPA2005A00735

PATIENT
  Age: 58 Year
  Sex: Female
  Weight: 95.2554 kg

DRUGS (8)
  1. ACTOS [Suspect]
     Indication: DIABETES MELLITUS
     Dosage: 15 MG, 1 IN 1 D, PER ORAL
     Route: 048
     Dates: start: 20040101
  2. LEVOXYL [Concomitant]
  3. GLUCOPHAGE (METFORMIN HYDROCHOLRIDE) [Concomitant]
  4. PRANDIN [Concomitant]
  5. WELCHOL (COLESEVELAM HYDROCHLORIDE) (TABLETS) [Concomitant]
  6. ZETIA [Concomitant]
  7. HCTZ/TRIAMTERENE (DYAZIDE) [Concomitant]
  8. ENALAPRIL MALEATE [Concomitant]

REACTIONS (1)
  - INAPPROPRIATE SCHEDULE OF DRUG ADMINISTRATION [None]
